FAERS Safety Report 9250905 (Version 1)
Quarter: 2013Q1

REPORT INFORMATION
  Report Type: Spontaneous
  Country: US (occurrence: None)
  Receive Date: 20130305
  Receipt Date: 20130305
  Transmission Date: 20140127
  Serious: Yes (Life-Threatening, Hospitalization, Other)
  Sender: FDA-Public Use
  Company Number: 163-21880-12082511

PATIENT
  Age: 62 Year
  Sex: Male
  Weight: 80.74 kg

DRUGS (6)
  1. REVLIMID [Suspect]
     Indication: PLASMA CELL MYELOMA
  2. DEXAMETHASONE (DEXAMETHASONE) [Concomitant]
  3. FOSAMAX [Concomitant]
  4. HYDROCODONE [Concomitant]
  5. XANAX [Concomitant]
  6. COUMADIN (WARFARIN SODIUM) [Concomitant]

REACTIONS (2)
  - Haemorrhage [None]
  - Deep vein thrombosis [None]
